FAERS Safety Report 8118191-8 (Version None)
Quarter: 2012Q1

REPORT INFORMATION
  Report Type: 
  Country: None (occurrence: None)
  Receive Date: 20120202
  Receipt Date: 20120117
  Transmission Date: 20120608
  Serious: Yes (Hospitalization)
  Sender: FDA-Public Use
  Company Number: FK201200221

PATIENT
  Age: 60 Year
  Sex: Male

DRUGS (3)
  1. ADALIMUMAB (ADALIMUMAB) (ADALIMUMAB) [Suspect]
     Indication: RHEUMATOID ARTHRITIS
     Dosage: 15 MG, 15 D
  2. METHOTREXATE [Suspect]
     Indication: RHEUMATOID ARTHRITIS
     Dosage: 15 MG, 1 WK
  3. LEFLUNOMIDE [Suspect]
     Indication: RHEUMATOID ARTHRITIS
     Dosage: 20 MG, 1 D

REACTIONS (7)
  - LUNG INFECTION [None]
  - LEG AMPUTATION [None]
  - OSTEOMYELITIS [None]
  - OSTEOLYSIS [None]
  - BONE SARCOMA [None]
  - SEPSIS [None]
  - PARACOCCIDIOIDES INFECTION [None]
